FAERS Safety Report 11050558 (Version 1)
Quarter: 2015Q2

REPORT INFORMATION
  Report Type: Spontaneous
  Country: US (occurrence: None)
  Receive Date: 20150420
  Receipt Date: 20150420
  Transmission Date: 20150821
  Serious: No
  Sender: FDA-Public Use
  Company Number: None

PATIENT

DRUGS (3)
  1. CEFTRIAXONE SODIUM (CEFTRIAXONE) HOSPIRA, INC. 1 GRAM [Suspect]
     Active Substance: CEFTRIAXONE SODIUM
     Dosage: INJECTABLE ?I.M. OR I.V. ?1 GRAM?SINGLE USE VIAL?
     Route: 030
  2. CEFTRIAXONE SODIUM (CEFTRIAXONE) HOSPIRA, INC. [Suspect]
     Active Substance: CEFTRIAXONE SODIUM
     Dosage: INJECTABLE?IM OR IV USE?250 MG?SINGLE USE VIAL?
     Route: 030
  3. CEFTRIAXONE SODIUM (CEFTRIAXONE) HOSPIRA, INC. [Suspect]
     Active Substance: CEFTRIAXONE SODIUM
     Dosage: INJECTABLE?IM OR IV USE?500 MG?SINGLE USE VIAL?
     Route: 030

REACTIONS (3)
  - Product packaging confusion [None]
  - Incorrect dose administered [None]
  - Drug dispensing error [None]
